FAERS Safety Report 12381065 (Version 1)
Quarter: 2016Q2

REPORT INFORMATION
  Report Type: Spontaneous
  Country: GB (occurrence: GB)
  Receive Date: 20160518
  Receipt Date: 20160518
  Transmission Date: 20160815
  Serious: Yes (Death)
  Sender: FDA-Public Use
  Company Number: GB-009507513-1605GBR008328

PATIENT
  Age: 39 Year
  Sex: Male
  Weight: 95 kg

DRUGS (9)
  1. GABAPENTIN. [Concomitant]
     Active Substance: GABAPENTIN
  2. CITALOPRAM [Concomitant]
     Active Substance: CITALOPRAM HYDROBROMIDE
  3. SPIRONOLACTONE. [Concomitant]
     Active Substance: SPIRONOLACTONE
  4. RIBAVIRIN. [Suspect]
     Active Substance: RIBAVIRIN
  5. HARVONI [Suspect]
     Active Substance: LEDIPASVIR\SOFOSBUVIR
     Indication: HEPATITIS C
     Dosage: LEDIAPSVIR 90MG SOFOSBUVIR 400MG
     Route: 048
     Dates: start: 20151016, end: 20160108
  6. NEBIVOLOL. [Concomitant]
     Active Substance: NEBIVOLOL
  7. SUMATRIPTAN SUCCINATE. [Concomitant]
     Active Substance: SUMATRIPTAN SUCCINATE
  8. BUMETANIDE. [Concomitant]
     Active Substance: BUMETANIDE
  9. BUPRENORPHINE. [Concomitant]
     Active Substance: BUPRENORPHINE

REACTIONS (1)
  - Cardiac death [Fatal]

NARRATIVE: CASE EVENT DATE: 20160122
